FAERS Safety Report 8916563 (Version 1)
Quarter: 2012Q4

REPORT INFORMATION
  Report Type: 
  Country: US (occurrence: US)
  Receive Date: 20121120
  Receipt Date: 20121120
  Transmission Date: 20130627
  Serious: Yes (Other)
  Sender: FDA-Public Use
  Company Number: US-TEVA-371021USA

PATIENT
  Age: 25 Year
  Sex: Female

DRUGS (1)
  1. COPAXONE [Suspect]
     Indication: MULTIPLE SCLEROSIS
     Dates: start: 20120920

REACTIONS (9)
  - Immediate post-injection reaction [Unknown]
  - Oxygen saturation decreased [Unknown]
  - Paraesthesia [Unknown]
  - Dyspnoea [Unknown]
  - Loss of consciousness [Unknown]
  - Chills [Unknown]
  - Pyrexia [Unknown]
  - Hypertension [Fatal]
  - Vomiting [Unknown]
